FAERS Safety Report 23448290 (Version 1)
Quarter: 2024Q1

REPORT INFORMATION
  Report Type: Other
  Country: FR (occurrence: FR)
  Receive Date: 20240127
  Receipt Date: 20240127
  Transmission Date: 20240410
  Serious: Yes (Congenital Anomaly)
  Sender: FDA-Public Use
  Company Number: None

PATIENT

DRUGS (2)
  1. BISOPROLOL [Suspect]
     Active Substance: BISOPROLOL\BISOPROLOL FUMARATE
     Indication: Myocardial ischaemia
     Dosage: 1 DOSAGE FORM, QD
     Route: 064
     Dates: start: 20230323, end: 20231121
  2. TAHOR [Suspect]
     Active Substance: ATORVASTATIN CALCIUM
     Indication: Myocardial ischaemia
     Dosage: 1 DOSAGE FORM, QD
     Route: 064
     Dates: start: 20230323, end: 20230912

REACTIONS (2)
  - Foetal growth restriction [Recovered/Resolved]
  - Transposition of the great vessels [Recovered/Resolved]

NARRATIVE: CASE EVENT DATE: 20230829
